FAERS Safety Report 8083116-0 (Version None)
Quarter: 2012Q1

REPORT INFORMATION
  Report Type: 
  Country: None (occurrence: None)
  Receive Date: 20120127
  Receipt Date: 20110303
  Transmission Date: 20120608
  Serious: No
  Sender: FDA-Public Use
  Company Number: US-ABBOTT-11P-163-0708930-00

PATIENT
  Sex: Female
  Weight: 59.02 kg

DRUGS (10)
  1. PROPRANOLOL [Concomitant]
     Indication: HYPERTENSION
  2. ZANAFLEX [Concomitant]
     Indication: SYSTEMIC LUPUS ERYTHEMATOSUS
  3. CYMBALTA [Concomitant]
     Indication: SYSTEMIC LUPUS ERYTHEMATOSUS
  4. HYDROCHLOROTHIAZIDE [Concomitant]
     Indication: HYPERTENSION
  5. LYRICA [Concomitant]
     Indication: FIBROMYALGIA
  6. BACLOFEN [Concomitant]
     Indication: SYSTEMIC LUPUS ERYTHEMATOSUS
  7. PERCOCET [Concomitant]
     Indication: SYSTEMIC LUPUS ERYTHEMATOSUS
  8. CLONIDINE [Concomitant]
     Indication: HYPERTENSION
  9. HUMIRA [Suspect]
     Indication: ARTHRITIS
     Dates: start: 20110225
  10. ASPIRIN [Concomitant]
     Indication: PRODUCT USED FOR UNKNOWN INDICATION

REACTIONS (1)
  - MENSTRUATION IRREGULAR [None]
